FAERS Safety Report 21891993 (Version 2)
Quarter: 2023Q1

REPORT INFORMATION
  Report Type: Spontaneous
  Country: US (occurrence: US)
  Receive Date: 20230120
  Receipt Date: 20230214
  Transmission Date: 20230417
  Serious: Yes (Other)
  Sender: FDA-Public Use
  Company Number: US-PFIZER INC-PV202300011680

PATIENT
  Age: 72 Year
  Sex: Female

DRUGS (2)
  1. SPIRONOLACTONE [Suspect]
     Active Substance: SPIRONOLACTONE
     Dosage: UNK
  2. TUKYSA [Suspect]
     Active Substance: TUCATINIB
     Dosage: UNK

REACTIONS (4)
  - Neuropathy peripheral [Unknown]
  - Blood pressure increased [Not Recovered/Not Resolved]
  - Urinary incontinence [Unknown]
  - Fatigue [Unknown]

NARRATIVE: CASE EVENT DATE: 20230101
